FAERS Safety Report 9674832 (Version 1)
Quarter: 2013Q4

REPORT INFORMATION
  Report Type: Spontaneous
  Country: US (occurrence: None)
  Receive Date: 20131106
  Receipt Date: 20131106
  Transmission Date: 20140711
  Serious: Yes (Death)
  Sender: FDA-Public Use
  Company Number: None

PATIENT
  Age: 89 Year
  Sex: Male

DRUGS (1)
  1. REVLIMID [Suspect]
     Indication: LYMPHOMA
     Route: 048
     Dates: start: 20130416

REACTIONS (2)
  - Disease progression [None]
  - Unevaluable event [None]
